FAERS Safety Report 9190837 (Version 1)
Quarter: 2013Q1

REPORT INFORMATION
  Report Type: Spontaneous
  Country: US (occurrence: US)
  Receive Date: 20130326
  Receipt Date: 20130326
  Transmission Date: 20140127
  Serious: Yes (Other)
  Sender: FDA-Public Use
  Company Number: US-GLAXOSMITHKLINE-A1016862A

PATIENT
  Age: 63 Year
  Sex: Male

DRUGS (3)
  1. LOVAZA [Suspect]
     Indication: BLOOD CHOLESTEROL INCREASED
     Dosage: 2CAP TWICE PER DAY
     Route: 048
     Dates: start: 201211
  2. NASAL SPRAY [Concomitant]
  3. UNSPECIFIED MEDICATION [Concomitant]
     Indication: MULTIPLE SCLEROSIS

REACTIONS (5)
  - Pulmonary congestion [Not Recovered/Not Resolved]
  - Constipation [Not Recovered/Not Resolved]
  - Sinus disorder [Not Recovered/Not Resolved]
  - Nasal congestion [Not Recovered/Not Resolved]
  - Hypersensitivity [Not Recovered/Not Resolved]
